FAERS Safety Report 8107717-6 (Version None)
Quarter: 2012Q1

REPORT INFORMATION
  Report Type: 
  Country: None (occurrence: None)
  Receive Date: 20120202
  Receipt Date: 20120123
  Transmission Date: 20120608
  Serious: Yes (Other)
  Sender: FDA-Public Use
  Company Number: JP-JNJFOC-20101002741

PATIENT

DRUGS (11)
  1. REMICADE [Suspect]
     Dosage: 1-10 DOSES
     Route: 042
  2. REMICADE [Suspect]
     Dosage: 1-10 DOSES
     Route: 042
  3. REMICADE [Suspect]
     Dosage: 1-10 DOSES
     Route: 042
  4. REMICADE [Suspect]
     Dosage: 1-10 DOSES
     Route: 042
  5. REMICADE [Suspect]
     Dosage: 11TH DOSE
     Route: 042
  6. REMICADE [Suspect]
     Dosage: 1-10 DOSES
     Route: 042
  7. REMICADE [Suspect]
     Dosage: 1-10 DOSES
     Route: 042
  8. REMICADE [Suspect]
     Dosage: 1-10 DOSES
     Route: 042
  9. REMICADE [Suspect]
     Dosage: 1-10 DOSES
     Route: 042
  10. REMICADE [Suspect]
     Indication: CROHN'S DISEASE
     Dosage: 1-10 DOSES
     Route: 042
  11. REMICADE [Suspect]
     Dosage: 1-10 DOSES
     Route: 042

REACTIONS (1)
  - SAPHO SYNDROME [None]
